FAERS Safety Report 5253145-0 (Version None)
Quarter: 2007Q1

REPORT INFORMATION
  Report Type: 
  Country: None (occurrence: None)
  Receive Date: 20070301
  Receipt Date: 20070228
  Transmission Date: 20070707
  Serious: Yes (Hospitalization)
  Sender: FDA-Public Use
  Company Number: JP-JPN-A200700747

PATIENT
  Sex: Female

DRUGS (3)
  1. PAXIL [Suspect]
     Indication: DEPRESSION
     Route: 048
     Dates: start: 20030301
  2. DEPAS [Concomitant]
     Route: 065
  3. SILECE [Concomitant]
     Route: 048

REACTIONS (1)
  - PULMONARY EMBOLISM [None]
